FAERS Safety Report 23160841 (Version 1)
Quarter: 2023Q4

REPORT INFORMATION
  Report Type: Spontaneous
  Country: US (occurrence: US)
  Receive Date: 20231108
  Receipt Date: 20231108
  Transmission Date: 20240109
  Serious: Yes (Other)
  Sender: FDA-Public Use
  Company Number: US-SLATERUN-2023SRSPO00007

PATIENT

DRUGS (1)
  1. DESVENLAFAXINE SUCCINATE [Suspect]
     Active Substance: DESVENLAFAXINE SUCCINATE
     Indication: Major depression
     Route: 048
     Dates: start: 202307

REACTIONS (9)
  - Suicidal ideation [Unknown]
  - Crying [Unknown]
  - Vision blurred [Unknown]
  - Visual impairment [Unknown]
  - Anxiety [Unknown]
  - Confusional state [Unknown]
  - Rash [Unknown]
  - Dizziness [Unknown]
  - Product substitution issue [Unknown]

NARRATIVE: CASE EVENT DATE: 20230701
